FAERS Safety Report 9068402 (Version 1)
Quarter: 2013Q1

REPORT INFORMATION
  Report Type: Spontaneous
  Country: US (occurrence: US)
  Receive Date: 20130128
  Receipt Date: 20130128
  Transmission Date: 20140127
  Serious: Yes (Death)
  Sender: FDA-Public Use
  Company Number: PHHY2013US006922

PATIENT
  Age: 53 Year
  Sex: Female

DRUGS (6)
  1. BACLOFEN [Suspect]
  2. DIAZEPAM [Suspect]
  3. TEMAZEPAM [Suspect]
  4. GABAPENTIN [Suspect]
  5. NAPROXEN [Suspect]
  6. NORDIAZEPAM [Suspect]

REACTIONS (2)
  - Completed suicide [Fatal]
  - Drug level increased [Unknown]
